FAERS Safety Report 17723484 (Version 1)
Quarter: 2020Q2

REPORT INFORMATION
  Report Type: Spontaneous
  Country: US (occurrence: US)
  Receive Date: 20200429
  Receipt Date: 20200429
  Transmission Date: 20200714
  Serious: Yes (Other)
  Sender: FDA-Public Use
  Company Number: None

PATIENT
  Sex: Male
  Weight: 135 kg

DRUGS (8)
  1. MULTIVITAMINS [Concomitant]
     Active Substance: VITAMINS
  2. ALLOPURINOL. [Concomitant]
     Active Substance: ALLOPURINOL
  3. VIT D [Concomitant]
     Active Substance: VITAMIN D NOS
  4. ZINC. [Concomitant]
     Active Substance: ZINC
  5. FINASTERIDE. [Suspect]
     Active Substance: FINASTERIDE
     Indication: PROSTATOMEGALY
     Route: 048
     Dates: start: 20131017, end: 20150201
  6. LISINOPRIL. [Concomitant]
     Active Substance: LISINOPRIL
  7. VITAMIN B COMPLEX [Concomitant]
     Active Substance: CYANOCOBALAMIN\DEXPANTHENOL\NIACINAMIDE\PYRIDOXINE HYDROCHLORIDE\RIBOFLAVIN 5^-PHOSPHATE SODIUM\THIAMINE HYDROCHLORIDE\VITAMIN B COMPLEX
  8. ALPHA VIRIL [Concomitant]

REACTIONS (9)
  - Testicular atrophy [None]
  - Cognitive disorder [None]
  - Mental disorder [None]
  - Depressed level of consciousness [None]
  - Impaired quality of life [None]
  - Loss of libido [None]
  - Penile size reduced [None]
  - Depression [None]
  - Ejaculation failure [None]
